FAERS Safety Report 5275878-2 (Version None)
Quarter: 2007Q1

REPORT INFORMATION
  Report Type: 
  Country: None (occurrence: None)
  Receive Date: 20061213
  Receipt Date: 20041229
  Transmission Date: 20070707
  Serious: Yes (Hospitalization)
  Sender: FDA-Public Use
  Company Number: 2004UW22593

PATIENT
  Age: 43 Year
  Sex: Male

DRUGS (4)
  1. SEROQUEL [Suspect]
     Indication: AGITATION
     Dosage: 400 MG DAILY PO
     Route: 048
     Dates: start: 20031201, end: 20040614
  2. SEROQUEL [Suspect]
     Indication: ANXIETY
     Dosage: 400 MG DAILY PO
     Route: 048
     Dates: start: 20031201, end: 20040614
  3. LEXAPRO [Suspect]
     Indication: DEPRESSION
     Dates: start: 20031001, end: 20040614
  4. AMBIEN [Concomitant]

REACTIONS (2)
  - ERECTILE DYSFUNCTION [None]
  - PRIAPISM [None]
